FAERS Safety Report 21964705 (Version 1)
Quarter: 2023Q1

REPORT INFORMATION
  Report Type: Spontaneous
  Country: PL (occurrence: PL)
  Receive Date: 20230207
  Receipt Date: 20230207
  Transmission Date: 20230418
  Serious: Yes (Other)
  Sender: FDA-Public Use
  Company Number: PL-BRISTOL-MYERS SQUIBB COMPANY-2023-013346

PATIENT
  Age: 82 Year
  Sex: Female

DRUGS (5)
  1. DEXAMETHASONE [Suspect]
     Active Substance: DEXAMETHASONE
     Indication: Plasma cell myeloma
     Dosage: TOTAL OF 6 CYCLES OF INDUCTION TREATMENT UNTIL SEPTEMBER 2019 (1 CYCLE OF VTD AND 5 CYCLES OF VD
     Route: 065
     Dates: end: 201909
  2. DEXAMETHASONE [Suspect]
     Active Substance: DEXAMETHASONE
     Dosage: TOTAL OF 6 CYCLES OF INDUCTION TREATMENT UNTIL SEPTEMBER 2019 (1 CYCLE OF VTD AND 5 CYCLES OF VD
     Route: 065
     Dates: start: 201901
  3. VELCADE [Suspect]
     Active Substance: BORTEZOMIB
     Indication: Plasma cell myeloma
     Dosage: IN CYCLE 1 IT WAS ADMINISTERED ON DAYS 1, 4, 8, 11), LATER WEEKLY.
     Route: 065
     Dates: end: 201909
  4. VELCADE [Suspect]
     Active Substance: BORTEZOMIB
     Dosage: 1 CYCLE OF VTD AND 5 CYCLES OF VD), IN CYCLE 1 IT WAS ADMINISTERED ON DAYS 1, 4, 8, 11)
     Route: 065
     Dates: start: 201901
  5. THALIDOMIDE [Suspect]
     Active Substance: THALIDOMIDE
     Indication: Plasma cell myeloma
     Dosage: 1 CYCLE OF VTD
     Route: 065
     Dates: start: 201901

REACTIONS (2)
  - Peripheral sensory neuropathy [Unknown]
  - Deep vein thrombosis [Unknown]
